FAERS Safety Report 8225697-X (Version None)
Quarter: 2012Q1

REPORT INFORMATION
  Report Type: 
  Country: None (occurrence: None)
  Receive Date: 20120321
  Receipt Date: 20120307
  Transmission Date: 20120608
  Serious: Yes (Other)
  Sender: FDA-Public Use
  Company Number: GB-VALEANT-2012VX001259

PATIENT

DRUGS (4)
  1. FLUOROURACIL [Suspect]
     Indication: HYPOPHARYNGEAL CANCER
     Dosage: DOSE UNIT:1000
     Route: 065
  2. FLUOROURACIL [Suspect]
     Dosage: DOSE UNIT:1000
     Route: 065
  3. CISPLATIN [Suspect]
     Indication: HYPOPHARYNGEAL CANCER
     Dosage: DOSE UNIT:75
     Route: 065
  4. CISPLATIN [Suspect]
     Dosage: DOSE UNIT:75
     Route: 065

REACTIONS (1)
  - MYOCARDIAL INFARCTION [None]
